FAERS Safety Report 9345403 (Version 3)
Quarter: 2014Q4

REPORT INFORMATION
  Report Type: Spontaneous
  Country: US (occurrence: US)
  Receive Date: 20130613
  Receipt Date: 20141208
  Transmission Date: 20150529
  Serious: Yes (Other)
  Sender: FDA-Public Use
  Company Number: US-AMGEN-USASP2012083884

PATIENT
  Age: 60 Year
  Sex: Female

DRUGS (4)
  1. KLONOPIN [Concomitant]
     Active Substance: CLONAZEPAM
     Dosage: UNK
  2. PEPCID [Concomitant]
     Active Substance: FAMOTIDINE
     Dosage: UNK
  3. PROTONIX [Concomitant]
     Active Substance: PANTOPRAZOLE SODIUM
     Dosage: UNK
  4. PROLIA [Suspect]
     Active Substance: DENOSUMAB
     Indication: OSTEOPOROSIS POSTMENOPAUSAL
     Dosage: UNK
     Route: 065
     Dates: start: 2012

REACTIONS (11)
  - Back pain [Unknown]
  - Musculoskeletal pain [Unknown]
  - Rib fracture [Not Recovered/Not Resolved]
  - Pain in extremity [Unknown]
  - Pain [Not Recovered/Not Resolved]
  - Tooth disorder [Unknown]
  - Groin pain [Unknown]
  - Drug ineffective [Unknown]
  - Mobility decreased [Unknown]
  - Tremor [Unknown]
  - Blood test abnormal [Unknown]

NARRATIVE: CASE EVENT DATE: 201302
